FAERS Safety Report 23323536 (Version 1)
Quarter: 2023Q4

REPORT INFORMATION
  Report Type: Other
  Country: US (occurrence: None)
  Receive Date: 20231220
  Receipt Date: 20231220
  Transmission Date: 20240110
  Serious: No
  Sender: FDA-Public Use
  Company Number: US-ROCHE-3385185

PATIENT
  Age: 50 Year
  Sex: Female

DRUGS (3)
  1. RITUXIMAB [Suspect]
     Active Substance: RITUXIMAB
     Indication: Sjogren^s syndrome
     Dosage: 2 DOSES SEPARATED BY 2 WEEKS ADMINISTERED EVERY 6 MONTHS
     Route: 041
  2. PREDNISONE [Concomitant]
     Active Substance: PREDNISONE
  3. DILTIAZEM [Concomitant]
     Active Substance: DILTIAZEM

REACTIONS (1)
  - Disease progression [Unknown]
